FAERS Safety Report 25651516 (Version 1)
Quarter: 2025Q3

REPORT INFORMATION
  Report Type: Spontaneous
  Country: EU (occurrence: EU)
  Receive Date: 20250806
  Receipt Date: 20250806
  Transmission Date: 20251020
  Serious: Yes (Other)
  Sender: MYLAN
  Company Number: EU-AUROBINDO-AUR-APL-2019-037464

PATIENT
  Sex: Female

DRUGS (12)
  1. ZOLEDRONIC ACID [Suspect]
     Active Substance: ZOLEDRONIC ACID
     Indication: Breast cancer
  2. ZOLEDRONIC ACID [Suspect]
     Active Substance: ZOLEDRONIC ACID
     Route: 042
  3. ZOLEDRONIC ACID [Suspect]
     Active Substance: ZOLEDRONIC ACID
     Route: 042
  4. ZOLEDRONIC ACID [Suspect]
     Active Substance: ZOLEDRONIC ACID
  5. LETROZOLE [Suspect]
     Active Substance: LETROZOLE
     Indication: Breast cancer
  6. LETROZOLE [Suspect]
     Active Substance: LETROZOLE
     Route: 042
  7. LETROZOLE [Suspect]
     Active Substance: LETROZOLE
     Route: 042
  8. LETROZOLE [Suspect]
     Active Substance: LETROZOLE
  9. TRIPTORELIN [Suspect]
     Active Substance: TRIPTORELIN
     Indication: Breast cancer
     Dosage: 3.75 MILLIGRAM, Q28D (4 WEEK)
  10. TRIPTORELIN [Suspect]
     Active Substance: TRIPTORELIN
     Dosage: 3.75 MILLIGRAM, Q28D (4 WEEK)
     Route: 065
  11. TRIPTORELIN [Suspect]
     Active Substance: TRIPTORELIN
     Dosage: 3.75 MILLIGRAM, Q28D (4 WEEK)
     Route: 065
  12. TRIPTORELIN [Suspect]
     Active Substance: TRIPTORELIN
     Dosage: 3.75 MILLIGRAM, Q28D (4 WEEK)

REACTIONS (1)
  - Disease progression [Unknown]
